FAERS Safety Report 24136091 (Version 1)
Quarter: 2024Q3

REPORT INFORMATION
  Report Type: Spontaneous
  Country: CA (occurrence: CA)
  Receive Date: 20240725
  Receipt Date: 20240725
  Transmission Date: 20241016
  Serious: Yes (Other)
  Sender: ACCORD
  Company Number: None

PATIENT
  Age: 32 Year
  Sex: Male

DRUGS (4)
  1. METHOTREXATE SODIUM [Suspect]
     Active Substance: METHOTREXATE SODIUM
     Indication: Product used for unknown indication
     Dosage: 1 EVERY 1 WEEKS
     Route: 048
  2. ASPIRIN [Concomitant]
     Active Substance: ASPIRIN
     Dosage: TABLET (ENTERIC- COATED)
  3. ENTOCORT [Concomitant]
     Active Substance: BUDESONIDE
     Dosage: CAPSULE, SUSTAINED RELEASE
  4. PENTASA [Concomitant]
     Active Substance: MESALAMINE
     Dosage: EVERY 1 DAYS

REACTIONS (4)
  - Large intestinal ulcer [Unknown]
  - Large intestinal stenosis [Unknown]
  - Drug ineffective [Unknown]
  - Ileal ulcer [Unknown]
